FAERS Safety Report 8164268-0 (Version None)
Quarter: 2012Q1

REPORT INFORMATION
  Report Type: 
  Country: None (occurrence: None)
  Receive Date: 20120224
  Receipt Date: 20120111
  Transmission Date: 20120608
  Serious: No
  Sender: FDA-Public Use
  Company Number: US-ASTRAZENECA-2012SE02453

PATIENT
  Age: 73 Year
  Sex: Female

DRUGS (1)
  1. VIMOVO [Suspect]
     Route: 048

REACTIONS (2)
  - ABDOMINAL DISCOMFORT [None]
  - NERVOUSNESS [None]
